FAERS Safety Report 8866226 (Version 1)
Quarter: 2012Q4

REPORT INFORMATION
  Report Type: 
  Country: US (occurrence: US)
  Receive Date: 20121025
  Receipt Date: 20121025
  Transmission Date: 20130627
  Serious: No
  Sender: FDA-Public Use
  Company Number: US-PFIZER INC-2012266045

PATIENT
  Age: 65 Year
  Sex: Female
  Weight: 49.89 kg

DRUGS (3)
  1. CELEBREX [Suspect]
     Indication: ARTHRITIS
     Dosage: UNK
  2. CELEBREX [Suspect]
     Indication: SPINAL DEFORMITY
  3. CELEBREX [Suspect]
     Indication: ARTHROPATHY

REACTIONS (1)
  - Pain [Unknown]
